FAERS Safety Report 16342020 (Version 1)
Quarter: 2019Q2

REPORT INFORMATION
  Report Type: Spontaneous
  Country: GR (occurrence: GR)
  Receive Date: 20190522
  Receipt Date: 20190522
  Transmission Date: 20190711
  Serious: Yes (Hospitalization)
  Sender: FDA-Public Use
  Company Number: GR-AUROBINDO-AUR-APL-2019-026688

PATIENT

DRUGS (2)
  1. QUINAPRIL/HYDROCHLOROTHIAZIDE FILM-COATED TABLET [Suspect]
     Active Substance: HYDROCHLOROTHIAZIDE\QUINAPRIL HYDROCHLORIDE
     Indication: HYPERTENSION
     Dosage: 1 DOSAGE FORM, ONCE A DAY (1 DF, 1X/DAY (20 MG/ 12.5 MG))
     Route: 065
  2. ALLOPURINOL. [Concomitant]
     Active Substance: ALLOPURINOL
     Indication: HYPERURICAEMIA
     Dosage: 300 MILLIGRAM, ONCE A DAY
     Route: 065

REACTIONS (1)
  - Metabolic alkalosis [Recovered/Resolved]
